FAERS Safety Report 21201378 (Version 1)
Quarter: 2022Q3

REPORT INFORMATION
  Report Type: Spontaneous
  Country: US (occurrence: US)
  Receive Date: 20220811
  Receipt Date: 20220811
  Transmission Date: 20221027
  Serious: No
  Sender: FDA-Public Use
  Company Number: US-TAKEDA-2022TUS054732

PATIENT
  Sex: Female

DRUGS (2)
  1. COLCRYS [Suspect]
     Active Substance: COLCHICINE
     Indication: Rheumatoid arthritis
     Dosage: UNK
     Route: 065
  2. ACTEMRA [Concomitant]
     Active Substance: TOCILIZUMAB
     Dosage: UNK

REACTIONS (2)
  - Limb discomfort [Unknown]
  - Myalgia [Unknown]
